FAERS Safety Report 8796791 (Version 3)
Quarter: 2013Q2

REPORT INFORMATION
  Report Type: Report from Study
  Country: JP (occurrence: JP)
  Receive Date: 20120919
  Receipt Date: 20130517
  Transmission Date: 20140414
  Serious: Yes (Other)
  Sender: FDA-Public Use
  Company Number: JP-VERTEX PHARMACEUTICAL INC.-AE-2012-008786

PATIENT
  Age: 52 Year
  Sex: Male

DRUGS (14)
  1. VX-950 (TELAPREVIR) [Suspect]
     Indication: CHRONIC HEPATITIS C
     Dosage: 2250 MG, QD
     Route: 048
     Dates: start: 20120308, end: 20120329
  2. VX-950 (TELAPREVIR) [Suspect]
     Dosage: 1500 MG, QD
     Route: 048
     Dates: start: 20120330, end: 20120531
  3. REBETOL [Suspect]
     Indication: CHRONIC HEPATITIS C
     Dosage: 800 MG, QD
     Route: 048
     Dates: start: 20120308, end: 20120404
  4. REBETOL [Suspect]
     Dosage: 800MG/DAY,4 DAYS/WEEK, 600MG/DAY,3 DAYS/WEEK
     Route: 048
     Dates: start: 20120405, end: 20120823
  5. PEGINTERFERON ALFA-2B [Suspect]
     Indication: CHRONIC HEPATITIS C
     Dosage: 1.5 ?G/KG, QW
     Route: 058
     Dates: start: 20120308, end: 20120823
  6. ALLEGRA [Concomitant]
     Dosage: 120 MG, QD
     Route: 048
     Dates: end: 20120823
  7. LOCHOL [Concomitant]
     Dosage: 20 MG, QD
     Route: 048
     Dates: start: 20120308, end: 20120517
  8. ALOSITOL [Concomitant]
     Dosage: 100 MG, QD
     Route: 048
     Dates: start: 20120601
  9. PREDONINE [Concomitant]
     Dosage: 10 MG, QD
     Route: 048
     Dates: start: 20120601
  10. PREDONINE [Concomitant]
     Dosage: 5 MG, QD
     Route: 048
     Dates: start: 20120615
  11. PREDONINE [Concomitant]
     Dosage: 3 MG, QD
     Route: 048
     Dates: start: 20120629
  12. PREDONINE [Concomitant]
     Dosage: 1 MG,QD
     Route: 048
     Dates: start: 20120713, end: 20120726
  13. MUCOSTA [Concomitant]
     Dosage: 300 MG, QD
     Route: 048
  14. GASMOTIN [Concomitant]
     Dosage: 15 MG, QD
     Route: 048

REACTIONS (1)
  - Retinal haemorrhage [Recovered/Resolved]
